FAERS Safety Report 8356187-1 (Version None)
Quarter: 2012Q2

REPORT INFORMATION
  Report Type: 
  Country: None (occurrence: None)
  Receive Date: 20120514
  Receipt Date: 20120508
  Transmission Date: 20120825
  Serious: Yes (Life-Threatening, Disabling)
  Sender: FDA-Public Use
  Company Number: JP-ASTELLAS-2012JP002526

PATIENT
  Sex: Female
  Weight: 45.4 kg

DRUGS (5)
  1. PRAVASTATIN SODIUM [Concomitant]
     Dosage: 1 DF, UID/QD
     Route: 048
     Dates: start: 20110209
  2. VESICARE [Suspect]
     Indication: POLLAKIURIA
  3. FERROUS CITRATE [Concomitant]
     Dosage: 1 DF, UID/QD
     Route: 048
     Dates: start: 20110722
  4. SHAKUYAKUKANZOUTOU [Suspect]
     Indication: BACK PAIN
     Dosage: 1 DF, TID
     Route: 048
     Dates: start: 20111205
  5. VESICARE [Suspect]
     Indication: HYPERTONIC BLADDER
     Dosage: 5 MG, UID/QD
     Route: 048
     Dates: start: 20111025

REACTIONS (5)
  - VENTRICULAR FIBRILLATION [None]
  - PSEUDOALDOSTERONISM [None]
  - HYPOKALAEMIA [None]
  - ELECTROCARDIOGRAM QT PROLONGED [None]
  - SYNCOPE [None]
